FAERS Safety Report 7313468-8 (Version None)
Quarter: 2011Q1

REPORT INFORMATION
  Report Type: 
  Country: None (occurrence: None)
  Receive Date: 20110225
  Receipt Date: 20110215
  Transmission Date: 20110831
  Serious: No
  Sender: FDA-Public Use
  Company Number: US-PFIZER INC-2010141847

PATIENT
  Sex: Male
  Weight: 67.6 kg

DRUGS (6)
  1. LIPITOR [Suspect]
     Indication: HYPERCHOLESTEROLAEMIA
     Dosage: UNK
     Route: 048
     Dates: start: 20090601
  2. LIPITOR [Suspect]
     Dosage: 40 MG, UNK
     Route: 048
     Dates: start: 20090101
  3. LIPITOR [Suspect]
     Dosage: 20 MG, UNK
     Route: 048
  4. ACETYLSALICYLIC ACID [Concomitant]
     Dosage: 81 MG, DAILY
  5. PLAVIX [Concomitant]
     Dosage: UNK
  6. HYDROCHLOROTHIAZIDE [Concomitant]
     Dosage: UNK

REACTIONS (1)
  - DRUG EFFECT INCREASED [None]
